FAERS Safety Report 24059527 (Version 2)
Quarter: 2024Q3

REPORT INFORMATION
  Report Type: Report from Study
  Country: US (occurrence: US)
  Receive Date: 20240708
  Receipt Date: 20240930
  Transmission Date: 20241017
  Serious: Yes (Hospitalization)
  Sender: ROCHE
  Company Number: US-ROCHE-10000012606

PATIENT
  Age: 68 Year
  Sex: Male

DRUGS (3)
  1. OCREVUS [Suspect]
     Active Substance: OCRELIZUMAB
     Indication: Primary progressive multiple sclerosis
     Route: 042
     Dates: end: 20210319
  2. GABAPENTIN [Concomitant]
     Active Substance: GABAPENTIN
     Dosage: 2 300MG CAPSULES WITH EACH DOSE, 1200MG PER DAY
     Route: 048
  3. BACLOFEN [Concomitant]
     Active Substance: BACLOFEN
     Indication: Muscle spasms
     Dosage: 1-2 TIMES PER DAY AS NEEDED
     Route: 048

REACTIONS (9)
  - Pneumonia [Recovered/Resolved with Sequelae]
  - COVID-19 [Recovered/Resolved]
  - Asthenia [Recovered/Resolved]
  - Fall [Unknown]
  - Dyspnoea [Recovered/Resolved]
  - Lung abscess [Unknown]
  - Dysania [Recovered/Resolved]
  - Head injury [Recovered/Resolved]
  - Illness [Unknown]

NARRATIVE: CASE EVENT DATE: 20240101
